FAERS Safety Report 4893280-X (Version None)
Quarter: 2006Q1

REPORT INFORMATION
  Report Type: 
  Country: None (occurrence: None)
  Receive Date: 20060124
  Receipt Date: 20060120
  Transmission Date: 20060701
  Serious: Yes (Hospitalization)
  Sender: FDA-Public Use
  Company Number: MK200601-0229-1

PATIENT
  Age: 39 Year
  Sex: Male

DRUGS (1)
  1. METHADOSE [Suspect]
     Indication: DRUG WITHDRAWAL MAINTENANCE THERAPY
     Dosage: 120 MG, QD, PO
     Route: 048

REACTIONS (6)
  - BLOOD MAGNESIUM DECREASED [None]
  - DRUG WITHDRAWAL SYNDROME [None]
  - ELECTROCARDIOGRAM QT PROLONGED [None]
  - SINUS BRADYCARDIA [None]
  - SINUS TACHYCARDIA [None]
  - SYNCOPE [None]
